FAERS Safety Report 7676981-X (Version None)
Quarter: 2011Q3

REPORT INFORMATION
  Report Type: 
  Country: None (occurrence: None)
  Receive Date: 20110805
  Receipt Date: 20110805
  Transmission Date: 20111222
  Serious: Yes (Hospitalization)
  Sender: FDA-Public Use
  Company Number: DSJ-2011-15278

PATIENT
  Sex: Female

DRUGS (3)
  1. SIMVASTATIN [Suspect]
     Indication: HYPERCHOLESTEROLAEMIA
     Dosage: UNKNOWN PER ORAL
     Route: 048
     Dates: start: 20110101
  2. BENICAR [Suspect]
     Indication: HYPERTENSION
     Dosage: 40MG (40 MG, 1 IN 1 D) PER ORAL
     Route: 048
     Dates: start: 20070101
  3. OMEPRAZOLE [Concomitant]

REACTIONS (4)
  - CHEST PAIN [None]
  - MYOCARDIAL ISCHAEMIA [None]
  - HYPERCHOLESTEROLAEMIA [None]
  - DRUG INEFFECTIVE [None]
